FAERS Safety Report 18648026 (Version 1)
Quarter: 2020Q4

REPORT INFORMATION
  Report Type: Spontaneous
  Country: US (occurrence: US)
  Receive Date: 20201221
  Receipt Date: 20201221
  Transmission Date: 20210114
  Serious: Yes (Death)
  Sender: FDA-Public Use
  Company Number: None

PATIENT
  Age: 47 Year
  Sex: Male
  Weight: 90.45 kg

DRUGS (12)
  1. LACTULOSE. [Concomitant]
     Active Substance: LACTULOSE
  2. PROTONIX [Concomitant]
     Active Substance: PANTOPRAZOLE SODIUM
  3. PROCHLORPERAZINE MALEATE. [Concomitant]
     Active Substance: PROCHLORPERAZINE MALEATE
  4. MEKTOVI [Suspect]
     Active Substance: BINIMETINIB
     Indication: MALIGNANT MELANOMA
     Route: 048
     Dates: start: 20201015, end: 20201221
  5. DIPHENHYDRAMINE HCL [Concomitant]
     Active Substance: DIPHENHYDRAMINE HYDROCHLORIDE
  6. SENNA LAXATIVE [Concomitant]
     Active Substance: SENNOSIDES
  7. LORAZEPAM. [Concomitant]
     Active Substance: LORAZEPAM
  8. MORPHINE SULFATE ER [Concomitant]
     Active Substance: MORPHINE SULFATE
  9. COLACE [Concomitant]
     Active Substance: DOCUSATE SODIUM
  10. PREDNISONE. [Concomitant]
     Active Substance: PREDNISONE
  11. BRAFTOVI [Suspect]
     Active Substance: ENCORAFENIB
     Indication: MALIGNANT MELANOMA
     Route: 048
     Dates: start: 20201015, end: 20201221
  12. TYLENOL 8HR [Concomitant]
     Active Substance: ACETAMINOPHEN

REACTIONS (1)
  - Death [None]

NARRATIVE: CASE EVENT DATE: 20201127
